FAERS Safety Report 12793890 (Version 2)
Quarter: 2016Q4

REPORT INFORMATION
  Report Type: Report from Study
  Country: CO (occurrence: CO)
  Receive Date: 20160929
  Receipt Date: 20161012
  Transmission Date: 20170207
  Serious: Yes (Death)
  Sender: FDA-Public Use
  Company Number: CO-ASTRAZENECA-2016SF02147

PATIENT
  Age: 21412 Day
  Sex: Female

DRUGS (4)
  1. ISOSORBIDE DINITRATE. [Concomitant]
     Active Substance: ISOSORBIDE DINITRATE
     Indication: HYPERTENSION
     Route: 048
  2. BRILINTA [Suspect]
     Active Substance: TICAGRELOR
     Indication: ACUTE CORONARY SYNDROME
     Route: 048
     Dates: start: 20160819, end: 20160819
  3. OTHER MEDICATION [Concomitant]
     Active Substance: UNSPECIFIED INGREDIENT
     Indication: DIABETES MELLITUS
     Route: 048
  4. BRILINTA [Suspect]
     Active Substance: TICAGRELOR
     Indication: ACUTE CORONARY SYNDROME
     Route: 048
     Dates: start: 20150101

REACTIONS (3)
  - Intracranial pressure increased [Fatal]
  - Cardiac arrest [Fatal]
  - Tachycardia [Unknown]

NARRATIVE: CASE EVENT DATE: 20150101
